FAERS Safety Report 18606054 (Version 3)
Quarter: 2021Q1

REPORT INFORMATION
  Report Type: Spontaneous
  Country: US (occurrence: US)
  Receive Date: 20201211
  Receipt Date: 20210308
  Transmission Date: 20210419
  Serious: Yes (Hospitalization)
  Sender: FDA-Public Use
  Company Number: NVSC2020US321300

PATIENT

DRUGS (1)
  1. ADAKVEO [Suspect]
     Active Substance: CRIZANLIZUMAB-TMCA
     Indication: SICKLE CELL DISEASE
     Dosage: UNK (35 MG OR 10 ML)
     Route: 042

REACTIONS (1)
  - Pain [Recovering/Resolving]
